FAERS Safety Report 6639959-0 (Version None)
Quarter: 2010Q1

REPORT INFORMATION
  Report Type: 
  Country: None (occurrence: None)
  Receive Date: 20100318
  Receipt Date: 20100310
  Transmission Date: 20100710
  Serious: Yes (Hospitalization)
  Sender: FDA-Public Use
  Company Number: JP-SANOFI-AVENTIS-2010SA001823

PATIENT
  Age: 65 Year
  Sex: Female
  Weight: 39.15 kg

DRUGS (3)
  1. PLAVIX [Suspect]
     Route: 048
     Dates: start: 20090901, end: 20091028
  2. IBUDILAST [Suspect]
     Route: 048
     Dates: start: 20090901, end: 20091028
  3. SIMVASTATIN [Suspect]
     Indication: HYPERLIPIDAEMIA
     Route: 048
     Dates: start: 20090901, end: 20091028

REACTIONS (3)
  - JAUNDICE [None]
  - LIVER DISORDER [None]
  - WEIGHT DECREASED [None]
